FAERS Safety Report 13615186 (Version 2)
Quarter: 2017Q3

REPORT INFORMATION
  Report Type: Report from Study
  Country: AU (occurrence: AU)
  Receive Date: 20170606
  Receipt Date: 20170705
  Transmission Date: 20171127
  Serious: Yes (Other)
  Sender: FDA-Public Use
  Company Number: PHHY2017AU072332

PATIENT
  Sex: Female

DRUGS (1)
  1. COSENTYX [Suspect]
     Active Substance: SECUKINUMAB
     Indication: PSORIASIS
     Dosage: 300 MG, QW
     Route: 058
     Dates: start: 20170506

REACTIONS (7)
  - Pain [Unknown]
  - Diarrhoea [Unknown]
  - Malaise [Unknown]
  - Lower respiratory tract infection [Unknown]
  - Wheezing [Unknown]
  - Influenza [Unknown]
  - Chest discomfort [Unknown]
